FAERS Safety Report 7750536-0 (Version None)
Quarter: 2011Q3

REPORT INFORMATION
  Report Type: 
  Country: None (occurrence: None)
  Receive Date: 20110914
  Receipt Date: 20110905
  Transmission Date: 20111222
  Serious: Yes (Other)
  Sender: FDA-Public Use
  Company Number: CZ-JNJFOC-20110902440

PATIENT
  Sex: Female

DRUGS (3)
  1. REMICADE [Suspect]
     Indication: PSORIATIC ARTHROPATHY
     Route: 042
     Dates: start: 20110905, end: 20110901
  2. REMICADE [Suspect]
     Route: 042
     Dates: start: 20080401
  3. METHOTREXATE [Concomitant]

REACTIONS (6)
  - EYE PAIN [None]
  - DYSPNOEA [None]
  - CHEST PAIN [None]
  - ERYTHEMA [None]
  - INFUSION RELATED REACTION [None]
  - CONJUNCTIVAL HYPERAEMIA [None]
